FAERS Safety Report 4344752-8 (Version None)
Quarter: 2004Q2

REPORT INFORMATION
  Report Type: 
  Country: None (occurrence: None)
  Receive Date: 20040420
  Receipt Date: 20040407
  Transmission Date: 20050107
  Serious: Yes (Hospitalization)
  Sender: FDA-Public Use
  Company Number: NSADSS2002012164

PATIENT
  Age: 50 Year
  Sex: Male

DRUGS (4)
  1. REMICADE [Suspect]
     Indication: RHEUMATOID ARTHRITIS
     Dosage: 300 MG, 1 IN 4 WEEK, INTRAVENOUS DRIP; 1 IN 4 WEEK, INTRAVENOUS DRIP
     Route: 041
     Dates: start: 20000601, end: 20000601
  2. REMICADE [Suspect]
     Indication: RHEUMATOID ARTHRITIS
     Dosage: 300 MG, 1 IN 4 WEEK, INTRAVENOUS DRIP; 1 IN 4 WEEK, INTRAVENOUS DRIP
     Route: 041
     Dates: start: 20020101, end: 20020101
  3. METHOTREXATE [Suspect]
     Indication: RHEUMATOID ARTHRITIS
     Dosage: 20 UG, 1 IN 1 WEEK
     Dates: start: 20000601, end: 20020101
  4. MEDROL [Concomitant]

REACTIONS (4)
  - DISEASE RECURRENCE [None]
  - HEPATITIS B [None]
  - SYNOVITIS [None]
  - VIRAEMIA [None]
